FAERS Safety Report 10418640 (Version 1)
Quarter: 2014Q3

REPORT INFORMATION
  Report Type: Spontaneous
  Country: US (occurrence: US)
  Receive Date: 20140829
  Receipt Date: 20140829
  Transmission Date: 20150326
  Serious: Yes (Other)
  Sender: FDA-Public Use
  Company Number: US-JNJFOC-20140817637

PATIENT
  Sex: Male
  Weight: 95.26 kg

DRUGS (3)
  1. DURAGESIC [Suspect]
     Active Substance: FENTANYL
     Indication: BACK PAIN
     Route: 062
     Dates: end: 200405
  2. DURAGESIC [Suspect]
     Active Substance: FENTANYL
     Indication: BACK PAIN
     Route: 062
     Dates: end: 200405
  3. DURAGESIC [Suspect]
     Active Substance: FENTANYL
     Indication: BACK PAIN
     Route: 062
     Dates: start: 2001

REACTIONS (18)
  - Depressed level of consciousness [Recovered/Resolved]
  - Urine abnormality [Recovered/Resolved]
  - Abnormal loss of weight [Not Recovered/Not Resolved]
  - Drug withdrawal syndrome [Recovered/Resolved]
  - Back pain [Unknown]
  - Blood pressure increased [Unknown]
  - Vertigo [Recovered/Resolved]
  - Pallor [Unknown]
  - Speech disorder [Not Recovered/Not Resolved]
  - Head injury [Unknown]
  - Blood cholesterol increased [Unknown]
  - Adverse event [Unknown]
  - Cardiac disorder [Not Recovered/Not Resolved]
  - Trigger finger [Unknown]
  - Dementia Alzheimer^s type [Not Recovered/Not Resolved]
  - Headache [Recovered/Resolved]
  - Pain [Not Recovered/Not Resolved]
  - Dysarthria [Unknown]

NARRATIVE: CASE EVENT DATE: 2004
